FAERS Safety Report 6277589-3 (Version None)
Quarter: 2009Q3

REPORT INFORMATION
  Report Type: 
  Country: None (occurrence: None)
  Receive Date: 20090722
  Receipt Date: 20090720
  Transmission Date: 20100115
  Serious: Yes (Other)
  Sender: FDA-Public Use
  Company Number: IN-ROXANE LABORATORIES, INC.-2009-RO-00729RO

PATIENT
  Age: 43 Year
  Sex: Female

DRUGS (5)
  1. AZATHIOPRINE [Suspect]
     Indication: IMMUNOSUPPRESSANT DRUG THERAPY
  2. TACROLIMUS [Suspect]
     Indication: IMMUNOSUPPRESSANT DRUG THERAPY
  3. METFORMIN HCL [Suspect]
  4. CORTICOSTEROIDS [Concomitant]
  5. CYCLOSPORINE [Concomitant]

REACTIONS (2)
  - HEPATITIS C [None]
  - HEPATITIS CHOLESTATIC [None]
